FAERS Safety Report 25237275 (Version 2)
Quarter: 2025Q3

REPORT INFORMATION
  Report Type: Report from Study
  Country: US (occurrence: US)
  Receive Date: 20250425
  Receipt Date: 20250731
  Transmission Date: 20251021
  Serious: Yes (Hospitalization)
  Sender: JOHNSON AND JOHNSON
  Company Number: US-JNJFOC-20250425183

PATIENT

DRUGS (3)
  1. TECVAYLI [Suspect]
     Active Substance: TECLISTAMAB-CQYV
     Indication: Product used for unknown indication
     Dates: start: 20230612
  2. TECVAYLI [Suspect]
     Active Substance: TECLISTAMAB-CQYV
     Dates: start: 20240103, end: 20240221
  3. TECVAYLI [Suspect]
     Active Substance: TECLISTAMAB-CQYV
     Dates: start: 20240415

REACTIONS (5)
  - Nephrolithiasis [Unknown]
  - Pyelonephritis [Recovering/Resolving]
  - Infection [Unknown]
  - Headache [Unknown]
  - Therapy cessation [Unknown]

NARRATIVE: CASE EVENT DATE: 20230710
